FAERS Safety Report 10429735 (Version 2)
Quarter: 2014Q3

REPORT INFORMATION
  Report Type: Spontaneous
  Country: JP (occurrence: JP)
  Receive Date: 20140904
  Receipt Date: 20140912
  Transmission Date: 20150326
  Serious: Yes (Other)
  Sender: FDA-Public Use
  Company Number: JP-GE HEALTHCARE MEDICAL DIAGNOSTICS-OMPQ-PR-1409S-1077

PATIENT
  Age: 81 Year
  Sex: Female
  Weight: 50 kg

DRUGS (4)
  1. UNSPECIFIED ANTICOAGULANT THERAPY [Concomitant]
     Indication: PULMONARY THROMBOSIS
     Dates: start: 20140804
  2. OMNIPAQUE [Suspect]
     Active Substance: IOHEXOL
     Indication: DEEP VEIN THROMBOSIS
     Route: 042
     Dates: start: 20140811, end: 20140811
  3. OMNIPAQUE [Suspect]
     Active Substance: IOHEXOL
     Indication: PULMONARY EMBOLISM
  4. OMNIPAQUE [Suspect]
     Active Substance: IOHEXOL
     Indication: DIAGNOSTIC PROCEDURE

REACTIONS (1)
  - Shock [Recovered/Resolved]

NARRATIVE: CASE EVENT DATE: 20140811
